FAERS Safety Report 19299923 (Version 1)
Quarter: 2021Q2

REPORT INFORMATION
  Report Type: Spontaneous
  Country: US (occurrence: US)
  Receive Date: 20210524
  Receipt Date: 20210524
  Transmission Date: 20210717
  Serious: No
  Sender: FDA-Public Use
  Company Number: None

PATIENT
  Age: 62 Year
  Sex: Female
  Weight: 113.4 kg

DRUGS (16)
  1. ATENLOL [Concomitant]
  2. CELEBREX [Concomitant]
     Active Substance: CELECOXIB
  3. POTASSIUM CHLORIDE ER [Concomitant]
     Active Substance: POTASSIUM CHLORIDE
  4. KRILL OIL [Concomitant]
     Active Substance: DIETARY SUPPLEMENT\KRILL OIL
  5. GABAPENTIN. [Concomitant]
     Active Substance: GABAPENTIN
  6. VENLAFAXINE 37.5MG ER CAP? SUB FOR EFFEXOR 37.5MG [Suspect]
     Active Substance: VENLAFAXINE HYDROCHLORIDE
     Indication: HYPERHIDROSIS
     Dosage: ?          QUANTITY:1 CAPSULE;?
     Route: 048
     Dates: start: 20210316, end: 20210320
  7. BIOTIN [Concomitant]
     Active Substance: BIOTIN
  8. BACLOFEN. [Concomitant]
     Active Substance: BACLOFEN
  9. ACETAMINOPHEN. [Concomitant]
     Active Substance: ACETAMINOPHEN
  10. CALCIUM [Concomitant]
     Active Substance: CALCIUM
  11. VITAMIN D3 [Concomitant]
     Active Substance: CHOLECALCIFEROL
  12. CRANBERRY. [Concomitant]
     Active Substance: CRANBERRY
  13. PROBIOTIC [Concomitant]
     Active Substance: PROBIOTICS NOS
  14. OEMEGA 3 [Concomitant]
  15. HYDROCODONE [Concomitant]
     Active Substance: HYDROCODONE
  16. CHLORTHALADONE [Concomitant]

REACTIONS (8)
  - Chest pain [None]
  - Feeling hot [None]
  - Headache [None]
  - Asthenia [None]
  - Chills [None]
  - Decreased appetite [None]
  - Diarrhoea [None]
  - Tremor [None]

NARRATIVE: CASE EVENT DATE: 20210316
